FAERS Safety Report 8215268-3 (Version None)
Quarter: 2012Q1

REPORT INFORMATION
  Report Type: 
  Country: None (occurrence: None)
  Receive Date: 20120316
  Receipt Date: 20120308
  Transmission Date: 20120608
  Serious: Yes (Hospitalization, Other)
  Sender: FDA-Public Use
  Company Number: CA-ABBOTT-11P-028-0877115-00

PATIENT
  Sex: Male

DRUGS (3)
  1. COMMERCIAL HUMIRA [Concomitant]
     Indication: CROHN'S DISEASE
     Route: 058
     Dates: start: 20081010
  2. ACETAMINOPHEN [Concomitant]
     Indication: ABDOMINAL PAIN
     Dates: start: 20110301
  3. HUMIRA [Suspect]
     Indication: CROHN'S DISEASE
     Route: 058
     Dates: start: 20081110, end: 20110430

REACTIONS (1)
  - BLADDER CANCER STAGE I, WITHOUT CANCER IN SITU [None]
